FAERS Safety Report 5683452-9 (Version None)
Quarter: 2008Q1

REPORT INFORMATION
  Report Type: 
  Country: None (occurrence: None)
  Receive Date: 20080326
  Receipt Date: 20080316
  Transmission Date: 20080703
  Serious: No
  Sender: FDA-Public Use
  Company Number: TPA2008A00334

PATIENT
  Age: 52 Year
  Sex: Female
  Weight: 72.5755 kg

DRUGS (6)
  1. ROZEREM [Suspect]
     Indication: INITIAL INSOMNIA
     Dosage: 8 MG,HS, PER ORAL; 4 MG, AS REQUIRED, PER ORAL
     Route: 048
     Dates: start: 20080312, end: 20080312
  2. ROZEREM [Suspect]
     Indication: MIDDLE INSOMNIA
     Dosage: 8 MG,HS, PER ORAL; 4 MG, AS REQUIRED, PER ORAL
     Route: 048
     Dates: start: 20080312, end: 20080312
  3. ROZEREM [Suspect]
     Indication: INITIAL INSOMNIA
     Dosage: 8 MG,HS, PER ORAL; 4 MG, AS REQUIRED, PER ORAL
     Route: 048
     Dates: start: 20080316
  4. ROZEREM [Suspect]
     Indication: MIDDLE INSOMNIA
     Dosage: 8 MG,HS, PER ORAL; 4 MG, AS REQUIRED, PER ORAL
     Route: 048
     Dates: start: 20080316
  5. PAXIL [Concomitant]
  6. LEVOTHYROXINE SODIUM [Concomitant]

REACTIONS (5)
  - ABNORMAL DREAMS [None]
  - INITIAL INSOMNIA [None]
  - MIDDLE INSOMNIA [None]
  - SOMNOLENCE [None]
  - TREATMENT NONCOMPLIANCE [None]
